FAERS Safety Report 10446449 (Version 1)
Quarter: 2014Q3

REPORT INFORMATION
  Report Type: Spontaneous
  Country: BR (occurrence: BR)
  Receive Date: 20140911
  Receipt Date: 20140911
  Transmission Date: 20150326
  Serious: Yes (Other)
  Sender: FDA-Public Use
  Company Number: BR-PFIZER INC-2014248673

PATIENT
  Age: 71 Year
  Sex: Female
  Weight: 58 kg

DRUGS (4)
  1. LIPITOR [Suspect]
     Active Substance: ATORVASTATIN CALCIUM
     Indication: BLOOD CHOLESTEROL INCREASED
     Dosage: 20 MG, ONCE A DAY
     Route: 048
     Dates: start: 20080813, end: 2013
  2. CELEBRA [Concomitant]
     Active Substance: CELECOXIB
     Dosage: 200 MG ONE CAPSULE, 2X/DAY
  3. LIPITOR [Suspect]
     Active Substance: ATORVASTATIN CALCIUM
     Dosage: HALF TABLET OF 20MG (10 MG), UNSPECIFIED FREQUENCY
     Route: 048
     Dates: start: 2013
  4. SYNTHROID [Concomitant]
     Active Substance: LEVOTHYROXINE SODIUM
     Indication: THYROID CANCER
     Dosage: 1 TABLET (100MG), 1X/DAY
     Dates: start: 2005

REACTIONS (1)
  - Blood pressure increased [Unknown]
